FAERS Safety Report 6961513-1 (Version None)
Quarter: 2010Q3

REPORT INFORMATION
  Report Type: 
  Country: None (occurrence: None)
  Receive Date: 20100901
  Receipt Date: 20100825
  Transmission Date: 20110219
  Serious: Yes (Hospitalization, Other)
  Sender: FDA-Public Use
  Company Number: FR-ABBOTT-04P-056-0266882-00

PATIENT
  Sex: Female
  Weight: 41 kg

DRUGS (15)
  1. HUMIRA [Suspect]
     Indication: RHEUMATOID ARTHRITIS
     Route: 058
     Dates: end: 20040622
  2. FLUCONAZOLE [Concomitant]
     Indication: INFECTION
     Dates: start: 20040623, end: 20040701
  3. PLAQUENIL [Concomitant]
     Indication: RHEUMATOID ARTHRITIS
     Route: 048
     Dates: start: 19880201, end: 19880901
  4. SALAZOPYRINE [Concomitant]
     Indication: RHEUMATOID ARTHRITIS
     Route: 048
     Dates: start: 19920301, end: 20010201
  5. SALAZOPYRINE [Concomitant]
     Route: 048
     Dates: start: 20021101, end: 20030613
  6. METHOTREXATE [Concomitant]
     Indication: RHEUMATOID ARTHRITIS
     Route: 048
     Dates: start: 19991101, end: 20031003
  7. SPECIAFOLDINE [Concomitant]
     Indication: RHEUMATOID ARTHRITIS
     Route: 048
     Dates: start: 19991101
  8. FOSAMAX [Concomitant]
     Indication: OSTEOPOROSIS PROPHYLAXIS
     Route: 048
     Dates: start: 20021104
  9. OROCAL [Concomitant]
     Indication: OSTEOPOROSIS
     Route: 048
     Dates: start: 19980119
  10. CORTANCYL [Concomitant]
     Indication: RHEUMATOID ARTHRITIS
     Route: 048
     Dates: start: 19970526, end: 20031003
  11. CORTANCYL [Concomitant]
     Route: 048
     Dates: start: 19990301, end: 19990601
  12. CORTANCYL [Concomitant]
     Route: 048
     Dates: start: 20031004
  13. VOLTAREN [Concomitant]
     Indication: RHEUMATOID ARTHRITIS
     Route: 048
     Dates: start: 20010719
  14. OMEPRAZOLE [Concomitant]
     Indication: PROPHYLAXIS AGAINST GASTROINTESTINAL ULCER
     Route: 048
     Dates: start: 20000302
  15. HUMIRA [Concomitant]
     Indication: RHEUMATOID ARTHRITIS
     Route: 058
     Dates: start: 20031020, end: 20040531

REACTIONS (1)
  - ENTEROCOLITIS INFECTIOUS [None]
